FAERS Safety Report 16122396 (Version 1)
Quarter: 2019Q1

REPORT INFORMATION
  Report Type: Spontaneous
  Country: US (occurrence: US)
  Receive Date: 20190222
  Receipt Date: 20190222
  Transmission Date: 20190418
  Serious: Yes (Hospitalization)
  Sender: FDA-Public Use
  Company Number: None

PATIENT
  Age: 61 Year
  Sex: Male

DRUGS (10)
  1. REVLIMID [Suspect]
     Active Substance: LENALIDOMIDE
     Indication: PLASMA CELL MYELOMA
     Dosage: ?          OTHER FREQUENCY:DAILY X 21D/28D;?
     Route: 048
  2. LENALIDOMIDE [Concomitant]
     Active Substance: LENALIDOMIDE
  3. ACYCLOVIR. [Concomitant]
     Active Substance: ACYCLOVIR
  4. DCXAMETHASONC [Concomitant]
  5. ASPIRIN. [Concomitant]
     Active Substance: ASPIRIN
  6. MULTIVITAMIN [Concomitant]
     Active Substance: VITAMINS
  7. PROCHLORPERAZINE. [Concomitant]
     Active Substance: PROCHLORPERAZINE
  8. SLONIACIN [Concomitant]
  9. CARFILZOMIB [Concomitant]
     Active Substance: CARFILZOMIB
  10. NIACIN. [Concomitant]
     Active Substance: NIACIN

REACTIONS (2)
  - Mental status changes [None]
  - Aphasia [None]

NARRATIVE: CASE EVENT DATE: 20190130
